FAERS Safety Report 4424094-2 (Version None)
Quarter: 2004Q3

REPORT INFORMATION
  Report Type: 
  Country: None (occurrence: None)
  Receive Date: 20040809
  Receipt Date: 20040809
  Transmission Date: 20050211
  Serious: Yes (Other)
  Sender: FDA-Public Use
  Company Number: None

PATIENT
  Age: 56 Year
  Sex: Female
  Weight: 146.5118 kg

DRUGS (2)
  1. GLIPIZIDE [Suspect]
     Indication: DIABETES MELLITUS
     Dosage: 10 MG PO BID
     Route: 048
     Dates: start: 20040730, end: 20040808
  2. GLIPIZIDE [Suspect]
     Indication: RENAL FAILURE
     Dosage: 10 MG PO BID
     Route: 048
     Dates: start: 20040730, end: 20040808

REACTIONS (1)
  - RASH GENERALISED [None]
